FAERS Safety Report 4739883-4 (Version None)
Quarter: 2005Q3

REPORT INFORMATION
  Report Type: 
  Country: None (occurrence: None)
  Receive Date: 20050810
  Receipt Date: 20040122
  Transmission Date: 20060218
  Serious: Yes (Hospitalization, Other)
  Sender: FDA-Public Use
  Company Number: 2004UW01147

PATIENT
  Age: 5275 Day
  Sex: Female
  Weight: 51.7 kg

DRUGS (13)
  1. SEROQUEL [Suspect]
     Indication: DEPRESSION
     Route: 048
     Dates: start: 20020601, end: 20030531
  2. SEROQUEL [Suspect]
     Indication: MENTAL DISORDER
     Route: 048
     Dates: start: 20020601, end: 20030531
  3. SEROQUEL [Suspect]
     Route: 048
     Dates: start: 20020601, end: 20030531
  4. SEROQUEL [Suspect]
     Dosage: HALF TAB IN AM, 1 TAB IN PM
     Route: 048
     Dates: start: 20030531, end: 20031101
  5. SEROQUEL [Suspect]
     Dosage: HALF TAB IN AM, 1 TAB IN PM
     Route: 048
     Dates: start: 20030531, end: 20031101
  6. SEROQUEL [Suspect]
     Dosage: HALF TAB IN AM, 1 TAB IN PM
     Route: 048
     Dates: start: 20030531, end: 20031101
  7. SEROQUEL [Suspect]
     Dosage: 25 MG IN AM, 50 MG IN PM
     Route: 048
     Dates: start: 20031101, end: 20040301
  8. SEROQUEL [Suspect]
     Dosage: 25 MG IN AM, 50 MG IN PM
     Route: 048
     Dates: start: 20031101, end: 20040301
  9. SEROQUEL [Suspect]
     Dosage: 25 MG IN AM, 50 MG IN PM
     Route: 048
     Dates: start: 20031101, end: 20040301
  10. CELEXA [Concomitant]
     Indication: DEPRESSION
     Dates: start: 20000901
  11. CELEXA [Concomitant]
  12. CELEXA [Concomitant]
     Dates: start: 20020801
  13. REMERON [Concomitant]
     Dates: start: 20020801

REACTIONS (30)
  - ABDOMINAL PAIN [None]
  - ABDOMINAL PAIN UPPER [None]
  - ACIDOSIS [None]
  - BACK PAIN [None]
  - BRONCHITIS ACUTE [None]
  - DECREASED APPETITE [None]
  - DEHYDRATION [None]
  - DEPRESSION [None]
  - DERMATITIS CONTACT [None]
  - DIABETES MELLITUS INSULIN-DEPENDENT [None]
  - DIABETIC KETOACIDOSIS [None]
  - EAR PAIN [None]
  - HYPERGLYCAEMIA [None]
  - HYPOKALAEMIA [None]
  - IMPULSE-CONTROL DISORDER [None]
  - INFECTIOUS MONONUCLEOSIS [None]
  - INFLUENZA LIKE ILLNESS [None]
  - KETONURIA [None]
  - PAIN [None]
  - PHARYNGITIS [None]
  - PHARYNGITIS STREPTOCOCCAL [None]
  - ROAD TRAFFIC ACCIDENT [None]
  - SELF INJURIOUS BEHAVIOUR [None]
  - SINUSITIS [None]
  - SOMNOLENCE [None]
  - TACHYCARDIA [None]
  - URINARY TRACT INFECTION [None]
  - VAGINITIS BACTERIAL [None]
  - VOMITING [None]
  - WEIGHT INCREASED [None]
